FAERS Safety Report 25435509 (Version 1)
Quarter: 2025Q2

REPORT INFORMATION
  Report Type: Spontaneous
  Country: JP (occurrence: JP)
  Receive Date: 20250613
  Receipt Date: 20250613
  Transmission Date: 20250716
  Serious: Yes (Death, Other)
  Sender: MERCK SHARP & DOHME LLC
  Company Number: JP-009507513-2295237

PATIENT
  Age: 55 Year
  Sex: Female

DRUGS (2)
  1. KEYTRUDA [Suspect]
     Active Substance: PEMBROLIZUMAB
     Indication: Uterine cancer
     Route: 041
     Dates: start: 20231014, end: 20250410
  2. LENVIMA [Suspect]
     Active Substance: LENVATINIB
     Indication: Uterine cancer
     Dosage: 10 MG
     Route: 048
     Dates: start: 20231014, end: 20250410

REACTIONS (6)
  - Brain death [Fatal]
  - Arthralgia [Unknown]
  - Cardio-respiratory arrest [Unknown]
  - Dysphagia [Unknown]
  - Blood creatine phosphokinase increased [Recovered/Resolved]
  - Asphyxia [Unknown]

NARRATIVE: CASE EVENT DATE: 20250328
